FAERS Safety Report 18241250 (Version 1)
Quarter: 2020Q3

REPORT INFORMATION
  Report Type: Report from Study
  Country: US (occurrence: US)
  Receive Date: 20200908
  Receipt Date: 20200908
  Transmission Date: 20201103
  Serious: Yes (Other)
  Sender: FDA-Public Use
  Company Number: US-GLAXOSMITHKLINE-US2020AMR135421

PATIENT
  Sex: Female

DRUGS (2)
  1. BUPROPION HYDROCHLORIDE XL [Suspect]
     Active Substance: BUPROPION HYDROCHLORIDE
     Indication: MAJOR DEPRESSION
     Dosage: 450 MG, 1D
     Route: 048
     Dates: start: 2014
  2. BUPROPION HYDROCHLORIDE XL [Suspect]
     Active Substance: BUPROPION HYDROCHLORIDE
     Indication: ANXIETY
     Dosage: 450 MG (300 MG + 150 MG) ONCE DAILY (IN THE MORNING) AND 150 MG TABLET EVERY
     Route: 048
     Dates: start: 2014

REACTIONS (4)
  - Malaise [Unknown]
  - Disability [Not Recovered/Not Resolved]
  - Inability to afford medication [Unknown]
  - Therapy change [Unknown]
